FAERS Safety Report 4360064-0 (Version None)
Quarter: 2004Q2

REPORT INFORMATION
  Report Type: 
  Country: None (occurrence: None)
  Receive Date: 20040514
  Receipt Date: 20040506
  Transmission Date: 20050107
  Serious: Yes (Other)
  Sender: FDA-Public Use
  Company Number: 2004-05-0364

PATIENT
  Age: 45 Year
  Sex: Female

DRUGS (1)
  1. AERIUS (DESLORATADINE) TABLETS 'LIKE CLARINEX' [Suspect]
     Indication: HYPERSENSITIVITY
     Dosage: 1 TAB
     Dates: start: 20040428

REACTIONS (2)
  - DYSPNOEA [None]
  - THROAT TIGHTNESS [None]
